FAERS Safety Report 4385326-2 (Version None)
Quarter: 2004Q2

REPORT INFORMATION
  Report Type: 
  Country: None (occurrence: None)
  Receive Date: 20040622
  Receipt Date: 20040609
  Transmission Date: 20050107
  Serious: Yes (Hospitalization)
  Sender: FDA-Public Use
  Company Number: IT-JNJFOC-20040602272

PATIENT
  Age: 78 Year
  Sex: Female

DRUGS (4)
  1. INFLIXIMAB, RECOMVINANT - BLINDED (INFLIXIMAB, RECOMVINANT) LYOPHILIZE [Suspect]
     Indication: TEMPORAL ARTERITIS
     Dosage: INTRAVENOUS
     Route: 042
     Dates: start: 20040517, end: 20040517
  2. PLACEBO (PLACEBO) LYOPHILIZED POWDER [Suspect]
     Indication: TEMPORAL ARTERITIS
     Dosage: INTRAVENOUS
     Route: 042
     Dates: start: 20040517, end: 20040517
  3. LANSOX (LANSOPRAZOLE) [Concomitant]
  4. LASIX [Concomitant]

REACTIONS (3)
  - ASTHENIA [None]
  - DYSPNOEA [None]
  - OEDEMA PERIPHERAL [None]
